FAERS Safety Report 13718002 (Version 7)
Quarter: 2019Q1

REPORT INFORMATION
  Report Type: Spontaneous
  Country: CA (occurrence: CA)
  Receive Date: 20170705
  Receipt Date: 20190212
  Transmission Date: 20190417
  Serious: Yes (Death, Disabling)
  Sender: FDA-Public Use
  Company Number: CA-PFIZER INC-2017271676

PATIENT
  Age: 65 Year
  Sex: Female

DRUGS (8)
  1. PANTOLOC /01263204/ [Concomitant]
     Active Substance: PANTOPRAZOLE SODIUM
     Dosage: 40 MG, 2X/DAY
     Route: 048
  2. IBRANCE [Suspect]
     Active Substance: PALBOCICLIB
     Dosage: 75 MG, 1X/DAY (1 CAPSULE 1X/DAY FOR 28 DAYS CONTINUOUSLY)
     Route: 048
     Dates: start: 20170421
  3. IBRANCE [Suspect]
     Active Substance: PALBOCICLIB
     Indication: BREAST CANCER METASTATIC
     Dosage: 125 MG, CYCLIC (1 CAPSULE FOR 21/28 DAYS)
     Route: 048
     Dates: start: 20170222
  4. LORAZEPAM. [Concomitant]
     Active Substance: LORAZEPAM
     Dosage: 1 MG, AS NEEDED
     Route: 048
  5. FLONASE /00908302/ [Concomitant]
     Active Substance: MOMETASONE FUROATE
     Dosage: UNK, 2X/DAY
     Route: 045
  6. LETROZOLE. [Suspect]
     Active Substance: LETROZOLE
     Indication: BREAST CANCER METASTATIC
     Dosage: 2.5 MG, DAILY
     Route: 048
  7. VITAMINS [Concomitant]
     Active Substance: VITAMINS
     Indication: SUPPLEMENTATION THERAPY
     Dosage: UNK
  8. CALCIUM + VIT.C [Concomitant]
     Active Substance: ASCORBIC ACID\CALCIUM CARBONATE
     Dosage: UNK, 1X/DAY

REACTIONS (4)
  - Dysphagia [Not Recovered/Not Resolved]
  - Product size issue [Not Recovered/Not Resolved]
  - Pleural effusion [Not Recovered/Not Resolved]
  - Death [Fatal]

NARRATIVE: CASE EVENT DATE: 20170425
